FAERS Safety Report 8814882 (Version 1)
Quarter: 2012Q4

REPORT INFORMATION
  Report Type: 
  Country: US (occurrence: US)
  Receive Date: 20120928
  Receipt Date: 20120928
  Transmission Date: 20130627
  Serious: No
  Sender: FDA-Public Use
  Company Number: US-MUTUAL PHARMACEUTICAL COMPANY, INC.-QLQN20110015

PATIENT
  Age: 69 Year
  Sex: Female
  Weight: 68.1 kg

DRUGS (9)
  1. QUALAQUIN [Suspect]
     Indication: LEG CRAMPS
     Route: 048
     Dates: end: 20110901
  2. METFORMIN 500 MG [Concomitant]
     Indication: TYPE 2 DIABETES MELLITUS
     Route: 048
  3. MELATONIN [Concomitant]
     Indication: INSOMNIA
     Route: 048
  4. CELEBREX [Concomitant]
     Indication: ARTHRITIS
     Route: 048
  5. ADVAIR 250 MCG/50 MCG [Concomitant]
     Indication: ASTHMA
  6. CYCLOBENZAPRINE [Concomitant]
     Indication: BACK PAIN
     Route: 048
  7. ACTOS [Concomitant]
     Indication: TYPE II DIABETES MELLITUS
     Route: 048
  8. ASPIRIN [Concomitant]
     Indication: ANTICOAGULANT THERAPY
     Route: 048
  9. CITALOPRAM [Concomitant]
     Indication: DEPRESSION
     Route: 048

REACTIONS (2)
  - Off label use [None]
  - Heart rate increased [Recovered/Resolved]
